FAERS Safety Report 6692693-3 (Version None)
Quarter: 2010Q2

REPORT INFORMATION
  Report Type: 
  Country: None (occurrence: None)
  Receive Date: 20100422
  Receipt Date: 20100412
  Transmission Date: 20101027
  Serious: Yes (Death, Hospitalization, Other)
  Sender: FDA-Public Use
  Company Number: US-PFIZER INC-2010001009

PATIENT
  Sex: Male
  Weight: 127 kg

DRUGS (22)
  1. TIKOSYN [Suspect]
     Dosage: 250 MG, 2X/DAY
     Dates: start: 20090928, end: 20091201
  2. TIKOSYN [Suspect]
     Dosage: 250 MG, 2X/DAY
     Dates: start: 20091201
  3. ASPIRIN [Concomitant]
     Dosage: 81 MG, 1X/DAY
  4. LASIX [Concomitant]
     Dosage: 80 MG, 1X/DAY
  5. LORAZEPAM [Concomitant]
     Dosage: 0.5 MG, 3X/DAY
  6. VITAMIN B-12 [Concomitant]
  7. WARFARIN [Concomitant]
     Dosage: 5 MG, 1X/DAY
  8. SYNTHROID [Concomitant]
     Dosage: 25 UG, 1X/DAY
  9. POTASSIUM [Concomitant]
     Dosage: 20 MEQ, 1X/DAY
  10. CLARITIN [Concomitant]
     Dosage: 10 MG, 1X/DAY
  11. DIGOXIN [Concomitant]
     Dosage: 0.125 MG, 1X/DAY
  12. ATROVENT [Concomitant]
     Dosage: UNK
  13. PRILOSEC [Concomitant]
     Dosage: 20 MG, 1X/DAY
  14. NITROGLYCERIN [Concomitant]
     Dosage: UNK
     Route: 060
  15. ZOFRAN [Concomitant]
     Dosage: 4 MG, AS NEEDED
  16. TYLENOL-500 [Concomitant]
     Dosage: UNK
  17. MAALOX [Concomitant]
  18. MORPHINE [Concomitant]
  19. SOLU-MEDROL [Concomitant]
     Dosage: 60 MG, 3X/DAY
     Route: 042
  20. ZOCOR [Concomitant]
     Dosage: 20 MG, 1X/DAY
  21. XOPENEX [Concomitant]
  22. COLACE [Concomitant]
     Dosage: 100 MBQ, 1X/DAY

REACTIONS (5)
  - ATRIAL FIBRILLATION [None]
  - CONDITION AGGRAVATED [None]
  - ELECTROCARDIOGRAM QT PROLONGED [None]
  - INTERSTITIAL LUNG DISEASE [None]
  - PNEUMONIA [None]
